FAERS Safety Report 7657061-6 (Version None)
Quarter: 2011Q3

REPORT INFORMATION
  Report Type: 
  Country: None (occurrence: None)
  Receive Date: 20110804
  Receipt Date: 20101021
  Transmission Date: 20111222
  Serious: No
  Sender: FDA-Public Use
  Company Number: US-GLAXOSMITHKLINE-A0762684A

PATIENT
  Age: 70 Year
  Sex: Male

DRUGS (5)
  1. ADVAIR DISKUS 100/50 [Suspect]
     Indication: ASTHMA EXERCISE INDUCED
     Dosage: 1PUFF TWICE PER DAY
     Route: 055
  2. SYMBICORT [Concomitant]
  3. VENTOLIN HFA [Suspect]
     Indication: ASTHMA EXERCISE INDUCED
     Dosage: 1PUFF AS REQUIRED
     Route: 055
  4. ADVAIR DISKUS 100/50 [Suspect]
     Dosage: 1PUFF TWICE PER DAY
     Route: 055
  5. QVAR 40 [Suspect]
     Indication: ASTHMA EXERCISE INDUCED
     Dosage: 1PUFF TWICE PER DAY
     Route: 048
     Dates: start: 20081119

REACTIONS (5)
  - THROAT IRRITATION [None]
  - DYSPNOEA [None]
  - EXPIRED DRUG ADMINISTERED [None]
  - THERAPEUTIC RESPONSE DECREASED [None]
  - INCREASED UPPER AIRWAY SECRETION [None]
